FAERS Safety Report 4613847-3 (Version None)
Quarter: 2005Q1

REPORT INFORMATION
  Report Type: 
  Country: None (occurrence: None)
  Receive Date: 20050321
  Receipt Date: 20050309
  Transmission Date: 20050727
  Serious: Yes (Hospitalization, Other)
  Sender: FDA-Public Use
  Company Number: FR-BRISTOL-MYERS SQUIBB COMPANY-12892923

PATIENT
  Age: 60 Year
  Sex: Male

DRUGS (2)
  1. APROVEL [Suspect]
     Route: 048
     Dates: start: 20040404
  2. LERCAN [Concomitant]
     Dates: start: 20040404

REACTIONS (3)
  - EUPHORIC MOOD [None]
  - MANIA [None]
  - PSYCHOMOTOR HYPERACTIVITY [None]
